FAERS Safety Report 6094050-X (Version None)
Quarter: 2009Q1

REPORT INFORMATION
  Report Type: 
  Country: None (occurrence: None)
  Receive Date: 20090226
  Receipt Date: 20090225
  Transmission Date: 20090719
  Serious: Yes (Death, Other)
  Sender: FDA-Public Use
  Company Number: FR-JNJFOC-20090205957

PATIENT
  Sex: Male

DRUGS (2)
  1. TAVANIC [Suspect]
     Indication: DRUG USE FOR UNKNOWN INDICATION
     Route: 065
  2. DRUGS NOS [Concomitant]
     Route: 065

REACTIONS (2)
  - BRONCHOPNEUMOPATHY [None]
  - TENDON RUPTURE [None]
